FAERS Safety Report 5659268-6 (Version None)
Quarter: 2008Q1

REPORT INFORMATION
  Report Type: 
  Country: None (occurrence: None)
  Receive Date: 20080311
  Receipt Date: 20070817
  Transmission Date: 20080703
  Serious: Yes (Other)
  Sender: FDA-Public Use
  Company Number: US-BAYER-200712034BCC

PATIENT
  Age: 52 Year
  Sex: Female
  Weight: 54 kg

DRUGS (8)
  1. ALEVE [Suspect]
     Indication: OSTEOARTHRITIS
     Dosage: AS USED: 440/220 MG  UNIT DOSE: 220 MG
     Route: 048
     Dates: start: 20070621
  2. ZESTRIL [Concomitant]
  3. TOPROL [Concomitant]
  4. THYROID TAB [Concomitant]
  5. HORMONES [Concomitant]
  6. MULTI-VITAMIN [Concomitant]
  7. FLONASE [Concomitant]
  8. CLARITIN [Concomitant]

REACTIONS (2)
  - DYSPNOEA [None]
  - FATIGUE [None]
